FAERS Safety Report 5334173-3 (Version None)
Quarter: 2007Q2

REPORT INFORMATION
  Report Type: 
  Country: None (occurrence: None)
  Receive Date: 20070523
  Receipt Date: 20070523
  Transmission Date: 20071010
  Serious: Yes (Disabling, Other)
  Sender: FDA-Public Use
  Company Number: None

PATIENT
  Sex: Male
  Weight: 107.0489 kg

DRUGS (1)
  1. ZOLOFT [Suspect]
     Indication: DEPRESSION
     Dosage: 1 TABLET EVERY DAY 047
     Dates: start: 20010101, end: 20070101

REACTIONS (18)
  - AGITATION [None]
  - BRADYKINESIA [None]
  - CARDIAC PACEMAKER INSERTION [None]
  - DEPRESSION [None]
  - DISORIENTATION [None]
  - DRUG WITHDRAWAL SYNDROME [None]
  - DYSARTHRIA [None]
  - HEADACHE [None]
  - LETHARGY [None]
  - MANIA [None]
  - MEMORY IMPAIRMENT [None]
  - MENTAL IMPAIRMENT [None]
  - NERVOUS SYSTEM DISORDER [None]
  - PARAESTHESIA [None]
  - PHOTOPSIA [None]
  - SPEECH DISORDER [None]
  - THINKING ABNORMAL [None]
  - TINNITUS [None]
